FAERS Safety Report 8011160-8 (Version None)
Quarter: 2011Q4

REPORT INFORMATION
  Report Type: 
  Country: None (occurrence: None)
  Receive Date: 20111228
  Receipt Date: 20111219
  Transmission Date: 20120403
  Serious: Yes (Other)
  Sender: FDA-Public Use
  Company Number: PHEH2011US010317

PATIENT

DRUGS (1)
  1. METHYLPHENIDATE [Suspect]
     Dosage: 10 MG, BID

REACTIONS (1)
  - DYSPHAGIA [None]
